FAERS Safety Report 14362418 (Version 1)
Quarter: 2018Q1

REPORT INFORMATION
  Report Type: Spontaneous
  Country: JP (occurrence: JP)
  Receive Date: 20180108
  Receipt Date: 20180108
  Transmission Date: 20180509
  Serious: Yes (Death)
  Sender: FDA-Public Use
  Company Number: JP-VALIDUS PHARMACEUTICALS LLC-JP-2018VAL000026

PATIENT

DRUGS (1)
  1. LASIX [Suspect]
     Active Substance: FUROSEMIDE
     Indication: POLYURIA
     Dosage: 5 DF, UNK
     Route: 042

REACTIONS (4)
  - Respiratory arrest [Unknown]
  - Blood pressure decreased [Unknown]
  - Cardiac arrest [Fatal]
  - Chest discomfort [Unknown]
